FAERS Safety Report 6982282-5 (Version None)
Quarter: 2010Q3

REPORT INFORMATION
  Report Type: 
  Country: None (occurrence: None)
  Receive Date: 20100914
  Receipt Date: 20091209
  Transmission Date: 20110219
  Serious: Yes (Other)
  Sender: FDA-Public Use
  Company Number: US-PFIZER INC-2009301904

PATIENT
  Sex: Female
  Weight: 77.098 kg

DRUGS (5)
  1. LYRICA [Suspect]
     Indication: ARTHRITIS
     Dosage: 50 MG, 3X/DAY
     Route: 048
     Dates: start: 20091113, end: 20091113
  2. LYRICA [Suspect]
     Indication: PAIN
  3. LYRICA [Suspect]
     Indication: FIBROMYALGIA
  4. TYLENOL [Concomitant]
     Dosage: UNK
  5. AMIODARONE [Concomitant]
     Dosage: 200 MG, 1X/DAY

REACTIONS (7)
  - BLINDNESS TRANSIENT [None]
  - DIZZINESS [None]
  - FATIGUE [None]
  - FEAR [None]
  - FEELING ABNORMAL [None]
  - HEAD DISCOMFORT [None]
  - PAIN [None]
